FAERS Safety Report 9323429 (Version 3)
Quarter: 2013Q3

REPORT INFORMATION
  Report Type: Spontaneous
  Country: US (occurrence: US)
  Receive Date: 20130603
  Receipt Date: 20130920
  Transmission Date: 20140515
  Serious: Yes (Other)
  Sender: FDA-Public Use
  Company Number: US-PFIZER INC-2013159679

PATIENT
  Age: 52 Year
  Sex: Female

DRUGS (1)
  1. XALKORI [Suspect]
     Indication: PERIPHERAL NERVE SHEATH TUMOUR MALIGNANT
     Dosage: 250 MG, TWICE DAILY
     Route: 048
     Dates: start: 20130423, end: 20130516

REACTIONS (6)
  - Renal failure [Recovered/Resolved]
  - Fatigue [Recovered/Resolved]
  - Hypotension [Recovered/Resolved]
  - Transaminases increased [Recovered/Resolved]
  - Drug hypersensitivity [Unknown]
  - Off label use [Unknown]
